FAERS Safety Report 23669536 (Version 1)
Quarter: 2024Q1

REPORT INFORMATION
  Report Type: Spontaneous
  Country: US (occurrence: US)
  Receive Date: 20240325
  Receipt Date: 20240325
  Transmission Date: 20240410
  Serious: Yes (Other)
  Sender: FDA-Public Use
  Company Number: US-MALLINCKRODT-MNK202401965

PATIENT
  Sex: Female
  Weight: 128 kg

DRUGS (16)
  1. CORTICOTROPIN [Suspect]
     Active Substance: CORTICOTROPIN
     Indication: Colitis ulcerative
     Route: 058
  2. RINVOQ [Concomitant]
     Active Substance: UPADACITINIB
     Dosage: UNKNOWN
  3. ADAPALENE [Concomitant]
     Active Substance: ADAPALENE
  4. VALIUM [Concomitant]
     Active Substance: DIAZEPAM
  5. VITAMIN B12 [Concomitant]
     Active Substance: CYANOCOBALAMIN
  6. VITAMIN D3 [Concomitant]
     Active Substance: CHOLECALCIFEROL
     Dosage: 10MCG
  7. VITAMINS NOS [Concomitant]
     Active Substance: VITAMINS
     Dosage: UNKNOWN
  8. TOBRADEX [Concomitant]
     Active Substance: DEXAMETHASONE\TOBRAMYCIN
     Dosage: 0.3 %-0.1% DROPS SUSP
  9. ALPHAGAN P [Concomitant]
     Active Substance: BRIMONIDINE TARTRATE
  10. BRIMONIDINE;DORZOLAMIDE;LATANOPROST;TIMOLOL [Concomitant]
     Dosage: UNKNOWN
  11. RESTASIS [Concomitant]
     Active Substance: CYCLOSPORINE
     Dosage: 0.05 % DROPERETTE
  12. ITRACONAZOLE [Concomitant]
     Active Substance: ITRACONAZOLE
  13. ALBUTEROL SULFATE [Concomitant]
     Active Substance: ALBUTEROL SULFATE
     Dosage: UNKNOWN
  14. XOLAIR [Concomitant]
     Active Substance: OMALIZUMAB
     Dosage: 150 MG/ML SYRINGE
  15. ENBREL [Concomitant]
     Active Substance: ETANERCEPT
     Dosage: 50 MG/ML SURECLICK
  16. METHOTREXATE [Concomitant]
     Active Substance: METHOTREXATE

REACTIONS (3)
  - Spinal fusion acquired [Unknown]
  - Back pain [Not Recovered/Not Resolved]
  - Product use in unapproved indication [Unknown]
